FAERS Safety Report 4629342-1 (Version None)
Quarter: 2005Q2

REPORT INFORMATION
  Report Type: 
  Country: None (occurrence: None)
  Receive Date: 20050405
  Receipt Date: 20050324
  Transmission Date: 20051028
  Serious: Yes (Other)
  Sender: FDA-Public Use
  Company Number: S05-USA-01591-01

PATIENT
  Age: 22 Year
  Sex: Female

DRUGS (3)
  1. CELEXA [Suspect]
     Indication: ANXIETY
     Dosage: 20 MG QD PO
     Route: 048
     Dates: start: 20030101
  2. CELEXA [Suspect]
     Indication: DEPRESSION
     Dosage: 20 MG QD PO
     Route: 048
     Dates: start: 20030101
  3. AMBIEN [Concomitant]

REACTIONS (2)
  - COLITIS ULCERATIVE [None]
  - PROCTITIS ULCERATIVE [None]
